FAERS Safety Report 12800569 (Version 1)
Quarter: 2016Q3

REPORT INFORMATION
  Report Type: Spontaneous
  Country: US (occurrence: US)
  Receive Date: 20160930
  Receipt Date: 20160930
  Transmission Date: 20161109
  Serious: Yes (Other)
  Sender: FDA-Public Use
  Company Number: US-ASTRAZENECA-2016SF02988

PATIENT
  Age: 25903 Day
  Sex: Female
  Weight: 77.1 kg

DRUGS (9)
  1. LOSARTAN. [Concomitant]
     Active Substance: LOSARTAN
     Indication: BLOOD PRESSURE ABNORMAL
  2. VITAMIN D3 [Concomitant]
     Active Substance: CHOLECALCIFEROL
  3. MUCINEX DM [Concomitant]
     Active Substance: DEXTROMETHORPHAN HYDROBROMIDE\GUAIFENESIN
     Indication: COUGH
     Route: 048
     Dates: start: 2011
  4. NEXIUM [Suspect]
     Active Substance: ESOMEPRAZOLE MAGNESIUM
     Indication: GASTROOESOPHAGEAL REFLUX DISEASE
     Route: 048
     Dates: start: 2007, end: 201608
  5. IBUPROFEN. [Concomitant]
     Active Substance: IBUPROFEN
     Indication: PAIN
     Route: 048
     Dates: start: 2016
  6. POTASSIUM [Concomitant]
     Active Substance: POTASSIUM
     Indication: PAIN IN EXTREMITY
     Route: 048
  7. COMPLETE MULTIVITAMIN [Concomitant]
     Active Substance: VITAMINS
     Indication: SUPPLEMENTATION THERAPY
     Dosage: 1, DAILY
     Route: 048
  8. TYLENOL [Concomitant]
     Active Substance: ACETAMINOPHEN
     Indication: PAIN
     Route: 048
  9. CALCIUM [Concomitant]
     Active Substance: CALCIUM
     Dosage: 2000.0MG UNKNOWN
     Dates: start: 201609

REACTIONS (7)
  - Osteoporosis [Unknown]
  - Pain [Unknown]
  - Secretion discharge [Unknown]
  - Ulcer [Unknown]
  - Insomnia [Unknown]
  - Mouth ulceration [Unknown]
  - Foot fracture [Unknown]

NARRATIVE: CASE EVENT DATE: 20151231
